FAERS Safety Report 8623237-4 (Version None)
Quarter: 2012Q3

REPORT INFORMATION
  Report Type: 
  Country: None (occurrence: None)
  Receive Date: 20120827
  Receipt Date: 20120802
  Transmission Date: 20120928
  Serious: No
  Sender: FDA-Public Use
  Company Number: US-009507513-1208USA002485

PATIENT

DRUGS (2)
  1. REBETOL [Suspect]
     Indication: HEPATITIS C
     Dosage: UNK
     Dates: start: 20120722
  2. PEG-INTRON [Suspect]
     Indication: HEPATITIS C
     Dosage: UNK
     Dates: start: 20120722

REACTIONS (7)
  - INJECTION SITE HAEMORRHAGE [None]
  - HYPERHIDROSIS [None]
  - MYALGIA [None]
  - CHILLS [None]
  - NAUSEA [None]
  - SINUS HEADACHE [None]
  - MUSCLE SPASMS [None]
